FAERS Safety Report 4338845-9 (Version None)
Quarter: 2004Q2

REPORT INFORMATION
  Report Type: 
  Country: None (occurrence: None)
  Receive Date: 20040414
  Receipt Date: 20040408
  Transmission Date: 20050107
  Serious: Yes (Hospitalization, Other)
  Sender: FDA-Public Use
  Company Number: US-MERCK-0404USA01000

PATIENT
  Age: 65 Year
  Sex: Female
  Weight: 69 kg

DRUGS (7)
  1. LIPITOR [Concomitant]
     Route: 048
  2. LOVENOX [Concomitant]
     Route: 058
     Dates: start: 20030410, end: 20030413
  3. TOPROL-XL [Concomitant]
     Route: 048
  4. PRILOSEC [Concomitant]
     Route: 048
  5. VIOXX [Suspect]
     Route: 048
     Dates: start: 20030406, end: 20030408
  6. VIOXX [Suspect]
     Route: 048
     Dates: start: 20030409, end: 20030410
  7. COUMADIN [Concomitant]
     Route: 048
     Dates: start: 20030408, end: 20030516

REACTIONS (3)
  - ARTHROPATHY [None]
  - CARDIAC FAILURE CONGESTIVE [None]
  - POST PROCEDURAL COMPLICATION [None]
